FAERS Safety Report 5422183-7 (Version None)
Quarter: 2007Q3

REPORT INFORMATION
  Report Type: 
  Country: None (occurrence: None)
  Receive Date: 20070821
  Receipt Date: 20070821
  Transmission Date: 20080115
  Serious: Yes (Life-Threatening)
  Sender: FDA-Public Use
  Company Number: None

PATIENT
  Age: 40 Year
  Sex: Female
  Weight: 68.0396 kg

DRUGS (1)
  1. CIPROFLOXACIN HCL [Suspect]
     Indication: ACUTE SINUSITIS
     Dosage: 1 TABLET 2X DAY PO
     Route: 048
     Dates: start: 20060816, end: 20070816

REACTIONS (6)
  - HEADACHE [None]
  - HYPERVENTILATION [None]
  - OBSTRUCTIVE AIRWAYS DISORDER [None]
  - PHARYNGEAL OEDEMA [None]
  - SINUS DISORDER [None]
  - SWELLING [None]
